FAERS Safety Report 13306018 (Version 1)
Quarter: 2017Q1

REPORT INFORMATION
  Report Type: Spontaneous
  Country: US (occurrence: US)
  Receive Date: 20170308
  Receipt Date: 20170308
  Transmission Date: 20170428
  Serious: No
  Sender: FDA-Public Use
  Company Number: US-VERTEX PHARMACEUTICALS-2017-001158

PATIENT
  Sex: Female

DRUGS (3)
  1. ORKAMBI [Suspect]
     Active Substance: IVACAFTOR\LUMACAFTOR
     Indication: CYSTIC FIBROSIS
     Dosage: UNK, BID
     Route: 048
  2. ENSKYCE [Interacting]
     Active Substance: DESOGESTREL\ETHINYL ESTRADIOL
     Indication: OVARIAN CYST
     Dosage: UNK UNK, QD
     Route: 048
  3. SKYLA [Suspect]
     Active Substance: LEVONORGESTREL
     Indication: OVARIAN CYST
     Dosage: UNK
     Route: 015
     Dates: end: 201610

REACTIONS (3)
  - Ovarian cyst [Not Recovered/Not Resolved]
  - Drug interaction [Recovered/Resolved]
  - Ovarian cyst ruptured [Unknown]
